FAERS Safety Report 9506788 (Version 3)
Quarter: 2015Q3

REPORT INFORMATION
  Report Type: Report from Study
  Country: US (occurrence: US)
  Receive Date: 20130909
  Receipt Date: 20150710
  Transmission Date: 20151125
  Serious: Yes (Other)
  Sender: FDA-Public Use
  Company Number: US-BIOGENIDEC-2013BI083317

PATIENT
  Age: 59 Year
  Sex: Female

DRUGS (4)
  1. AVONEX [Suspect]
     Active Substance: INTERFERON BETA-1A
     Indication: MULTIPLE SCLEROSIS
     Route: 030
     Dates: start: 20090109, end: 20140122
  2. AVONEX [Suspect]
     Active Substance: INTERFERON BETA-1A
     Indication: MULTIPLE SCLEROSIS
     Route: 030
     Dates: start: 19990701
  3. AVONEX [Suspect]
     Active Substance: INTERFERON BETA-1A
     Indication: MULTIPLE SCLEROSIS
     Route: 030
     Dates: start: 20140410
  4. AVONEX [Suspect]
     Active Substance: INTERFERON BETA-1A
     Indication: MULTIPLE SCLEROSIS
     Route: 030
     Dates: start: 20070808, end: 20071001

REACTIONS (21)
  - Multiple sclerosis relapse [Recovered/Resolved]
  - Hypertension [Not Recovered/Not Resolved]
  - Rash [Recovered/Resolved]
  - Chest pain [Recovered/Resolved]
  - Eczema [Recovered/Resolved]
  - Eczema infected [Unknown]
  - Blood pressure increased [Recovered/Resolved]
  - Neck pain [Not Recovered/Not Resolved]
  - Multiple sclerosis [Recovered/Resolved]
  - Balance disorder [Not Recovered/Not Resolved]
  - Scan abnormal [Unknown]
  - Skin cancer [Recovered/Resolved]
  - Dysphagia [Not Recovered/Not Resolved]
  - Hypoaesthesia [Not Recovered/Not Resolved]
  - Weight decreased [Unknown]
  - Gastric haemorrhage [Unknown]
  - Blood iron decreased [Unknown]
  - Paralysis [Recovered/Resolved]
  - Neck mass [Recovered/Resolved]
  - Skin disorder [Recovered/Resolved]
  - Gastric disorder [Recovered/Resolved]

NARRATIVE: CASE EVENT DATE: 20071001
